FAERS Safety Report 4526988-6 (Version None)
Quarter: 2004Q4

REPORT INFORMATION
  Report Type: 
  Country: None (occurrence: None)
  Receive Date: 20041213
  Receipt Date: 20040318
  Transmission Date: 20050328
  Serious: Yes (Hospitalization)
  Sender: FDA-Public Use
  Company Number: 194266

PATIENT
  Age: 48 Year
  Sex: Male
  Weight: 98.5 kg

DRUGS (3)
  1. AVONEX [Suspect]
     Indication: MULTIPLE SCLEROSIS
     Dosage: 30 UG; QW; IM
     Route: 030
     Dates: start: 20040305
  2. BACLOFEN [Concomitant]
  3. ATORVASTATIN (SORTIS) [Concomitant]

REACTIONS (5)
  - EYE DISORDER [None]
  - FEELING ABNORMAL [None]
  - GASTROINTESTINAL DISORDER [None]
  - PARAESTHESIA [None]
  - THERAPY NON-RESPONDER [None]
